FAERS Safety Report 5001920-X (Version None)
Quarter: 2006Q2

REPORT INFORMATION
  Report Type: 
  Country: None (occurrence: None)
  Receive Date: 20060515
  Receipt Date: 20050913
  Transmission Date: 20061013
  Serious: Yes (Hospitalization)
  Sender: FDA-Public Use
  Company Number: US-MERCK-0509USA01723

PATIENT
  Age: 69 Year
  Sex: Female
  Weight: 81 kg

DRUGS (3)
  1. VIOXX [Suspect]
     Indication: OSTEOARTHRITIS
     Route: 048
     Dates: start: 20010601, end: 20040930
  2. SYNTHROID [Concomitant]
     Indication: HYPOTHYROIDISM
     Route: 065
  3. OGEN [Concomitant]
     Route: 065

REACTIONS (75)
  - ABDOMINAL PAIN [None]
  - ANAEMIA [None]
  - AORTIC VALVE INCOMPETENCE [None]
  - AORTIC VALVE SCLEROSIS [None]
  - ARTERIAL STENOSIS [None]
  - ASTHENIA [None]
  - ASTHMA [None]
  - BLOOD PRESSURE DIASTOLIC INCREASED [None]
  - BLOOD PRESSURE SYSTOLIC INCREASED [None]
  - BURSITIS [None]
  - CARDIAC DISORDER [None]
  - CARDIAC FAILURE CONGESTIVE [None]
  - CATARACT [None]
  - CEREBELLAR ATROPHY [None]
  - CEREBRAL ARTERY STENOSIS [None]
  - CEREBRAL ATROPHY [None]
  - CEREBRAL HYGROMA [None]
  - CEREBRAL ISCHAEMIA [None]
  - CEREBROVASCULAR ACCIDENT [None]
  - CHEST PAIN [None]
  - CLUMSINESS [None]
  - COORDINATION ABNORMAL [None]
  - CORONARY ARTERY DISEASE [None]
  - DEPRESSION [None]
  - DILATATION ATRIAL [None]
  - DIZZINESS [None]
  - DYSARTHRIA [None]
  - DYSPNOEA [None]
  - DYSPNOEA EXERTIONAL [None]
  - DYSPNOEA PAROXYSMAL NOCTURNAL [None]
  - EXOPHTHALMOS [None]
  - FATIGUE [None]
  - GAIT DISTURBANCE [None]
  - GLAUCOMA [None]
  - HEADACHE [None]
  - HEMIPARESIS [None]
  - HYPERLIPIDAEMIA [None]
  - HYPERTENSION [None]
  - IMPAIRED DRIVING ABILITY [None]
  - IRIDOCYCLITIS [None]
  - IRITIS [None]
  - JOINT SWELLING [None]
  - LIGAMENT RUPTURE [None]
  - LOCAL SWELLING [None]
  - LUNG NEOPLASM [None]
  - MACULAR DEGENERATION [None]
  - MICROANGIOPATHY [None]
  - MYOCARDIAL INFARCTION [None]
  - MYOCARDIAL ISCHAEMIA [None]
  - NAUSEA [None]
  - NERVOUS SYSTEM DISORDER [None]
  - PAIN IN EXTREMITY [None]
  - PARAESTHESIA [None]
  - PERONEAL NERVE PALSY [None]
  - PORPHYRIA [None]
  - PORPHYRIA ACUTE [None]
  - PULMONARY FIBROSIS [None]
  - PYREXIA [None]
  - RADICULAR PAIN [None]
  - RASH [None]
  - RED BLOOD CELL SEDIMENTATION RATE INCREASED [None]
  - RESTLESS LEGS SYNDROME [None]
  - SCIATICA [None]
  - SUBCLAVIAN ARTERY STENOSIS [None]
  - SWELLING [None]
  - SYNOVITIS [None]
  - TRANSIENT ISCHAEMIC ATTACK [None]
  - TRICUSPID VALVE INCOMPETENCE [None]
  - UVEITIS [None]
  - VENTRICULAR HYPERTROPHY [None]
  - VISION BLURRED [None]
  - VISUAL ACUITY REDUCED [None]
  - VISUAL DISTURBANCE [None]
  - VITREOUS FLOATERS [None]
  - WHEEZING [None]
